FAERS Safety Report 26054083 (Version 1)
Quarter: 2025Q4

REPORT INFORMATION
  Report Type: Spontaneous
  Country: JP (occurrence: JP)
  Receive Date: 20251117
  Receipt Date: 20251117
  Transmission Date: 20260117
  Serious: Yes (Other)
  Sender: MERCK SHARP & DOHME LLC
  Company Number: JP-009507513-2349596

PATIENT
  Age: 78 Year
  Sex: Female

DRUGS (3)
  1. KEYTRUDA [Suspect]
     Active Substance: PEMBROLIZUMAB
     Indication: Uterine cancer
     Dosage: ADMINISTERED AT WEEK 0, 4, 7, 12, 15, 18, 21, 24, 27, 30
     Dates: start: 202205
  2. LENVIMA [Suspect]
     Active Substance: LENVATINIB
     Indication: Uterine cancer
     Dosage: 20 MG FROM WEEK 0 TO WEEK 8
  3. LENVIMA [Suspect]
     Active Substance: LENVATINIB
     Indication: Uterine cancer
     Dosage: 14 MG FROM WEEK 11 TO WEEK 30

REACTIONS (6)
  - Thrombocytopenia [Unknown]
  - Therapy partial responder [Unknown]
  - Hyperthyroidism [Recovering/Resolving]
  - Hypertension [Unknown]
  - Malignant neoplasm progression [Unknown]
  - Oedema peripheral [Recovering/Resolving]
